FAERS Safety Report 15807299 (Version 2)
Quarter: 2019Q1

REPORT INFORMATION
  Report Type: Spontaneous
  Country: US (occurrence: US)
  Receive Date: 20190110
  Receipt Date: 20190215
  Transmission Date: 20190417
  Serious: No
  Sender: FDA-Public Use
  Company Number: US-ASTRAZENECA-2019SE01323

PATIENT
  Age: 919 Month
  Sex: Female
  Weight: 93.4 kg

DRUGS (1)
  1. BYDUREON BCISE [Suspect]
     Active Substance: EXENATIDE
     Indication: TYPE 2 DIABETES MELLITUS
     Route: 058
     Dates: start: 2018

REACTIONS (6)
  - Weight increased [Not Recovered/Not Resolved]
  - Device malfunction [Unknown]
  - Injection site haemorrhage [Recovered/Resolved]
  - Circumstance or information capable of leading to medication error [Unknown]
  - Injection site mass [Not Recovered/Not Resolved]
  - Device leakage [Unknown]

NARRATIVE: CASE EVENT DATE: 201812
